FAERS Safety Report 7744801-0 (Version None)
Quarter: 2011Q3

REPORT INFORMATION
  Report Type: 
  Country: None (occurrence: None)
  Receive Date: 20110912
  Receipt Date: 20110912
  Transmission Date: 20111222
  Serious: Yes (Other)
  Sender: FDA-Public Use
  Company Number: None

PATIENT
  Age: 52 Year
  Sex: Female
  Weight: 74.842 kg

DRUGS (2)
  1. LAMOTRIGINE [Suspect]
     Indication: CONVULSION
     Dosage: 25MG
     Route: 048
     Dates: start: 20110621, end: 20110825
  2. LAMOTRIGINE [Suspect]
     Indication: DEPRESSION
     Dosage: 25MG
     Route: 048
     Dates: start: 20110621, end: 20110825

REACTIONS (7)
  - DYSPNOEA [None]
  - TINNITUS [None]
  - FATIGUE [None]
  - HEADACHE [None]
  - NECK PAIN [None]
  - PRODUCT SUBSTITUTION ISSUE [None]
  - MUSCULAR WEAKNESS [None]
